FAERS Safety Report 4684992-1 (Version None)
Quarter: 2005Q2

REPORT INFORMATION
  Report Type: 
  Country: None (occurrence: None)
  Receive Date: 20050608
  Receipt Date: 20050526
  Transmission Date: 20051028
  Serious: Yes (Other)
  Sender: FDA-Public Use
  Company Number: SE-JNJFOC-20050507274

PATIENT
  Age: 31 Year
  Sex: Female

DRUGS (5)
  1. REMICADE [Suspect]
     Indication: RHEUMATOID ARTHRITIS
     Route: 042
  2. SALAZOPYRIN [Concomitant]
  3. METHOTREXATE [Concomitant]
  4. FOLACIN [Concomitant]
  5. FOLACIN [Concomitant]

REACTIONS (5)
  - CARDIAC FLUTTER [None]
  - EXCITABILITY [None]
  - EYE PRURITUS [None]
  - HYPERHIDROSIS [None]
  - VISUAL DISTURBANCE [None]
